FAERS Safety Report 21703452 (Version 1)
Quarter: 2022Q4

REPORT INFORMATION
  Report Type: Spontaneous
  Country: US (occurrence: None)
  Receive Date: 20221209
  Receipt Date: 20221209
  Transmission Date: 20230112
  Serious: No
  Sender: FDA-Public Use
  Company Number: 2022A384222

PATIENT
  Age: 65 Year
  Sex: Female

DRUGS (1)
  1. SYMBICORT [Suspect]
     Active Substance: BUDESONIDE\FORMOTEROL FUMARATE DIHYDRATE
     Indication: Asthma
     Dosage: UP TO 2 PUFFS TWICE A DAY80.0UG AS REQUIRED
     Route: 055
     Dates: start: 202102

REACTIONS (10)
  - Incorrect dose administered by device [Recovered/Resolved]
  - Drug dose omission by device [Recovered/Resolved]
  - Rhinorrhoea [Not Recovered/Not Resolved]
  - Body temperature normal [Unknown]
  - Therapeutic product effect decreased [Not Recovered/Not Resolved]
  - Overweight [Not Recovered/Not Resolved]
  - Visual impairment [Unknown]
  - Device malfunction [Unknown]
  - Wrong technique in device usage process [Unknown]
  - Product use issue [Unknown]

NARRATIVE: CASE EVENT DATE: 20220101
